FAERS Safety Report 8840282 (Version 3)
Quarter: 2013Q2

REPORT INFORMATION
  Report Type: Spontaneous
  Country: IT (occurrence: IT)
  Receive Date: 20121015
  Receipt Date: 20130424
  Transmission Date: 20140414
  Serious: Yes (Hospitalization)
  Sender: FDA-Public Use
  Company Number: IT-ROCHE-1144885

PATIENT
  Age: 52 Year
  Sex: Male

DRUGS (2)
  1. RIVOTRIL [Suspect]
     Indication: PRODUCT USED FOR UNKNOWN INDICATION
     Dosage: 50 MG ONCE IN TOTAL
     Route: 048
     Dates: start: 20120703, end: 20120703
  2. SERTRALINA [Concomitant]
     Route: 065

REACTIONS (2)
  - Sopor [Recovered/Resolved]
  - Poisoning [Recovered/Resolved]
